FAERS Safety Report 20153438 (Version 2)
Quarter: 2021Q4

REPORT INFORMATION
  Report Type: Spontaneous
  Country: IT (occurrence: IT)
  Receive Date: 20211206
  Receipt Date: 20211220
  Transmission Date: 20220303
  Serious: Yes (Hospitalization)
  Sender: FDA-Public Use
  Company Number: IT-TEVA-2021-IT-1984834

PATIENT
  Age: 28 Year
  Sex: Female

DRUGS (6)
  1. LETROZOLE [Suspect]
     Active Substance: LETROZOLE
     Indication: Controlled ovarian stimulation
     Dosage: 5MG
     Route: 065
  2. FOLLITROPIN ALFA [Suspect]
     Active Substance: FOLLITROPIN ALFA
     Indication: Controlled ovarian stimulation
     Dosage: 150 IU (INTERNATIONAL UNIT) DAILY;
     Route: 065
  3. ORGALUTRAN [Suspect]
     Active Substance: GANIRELIX ACETATE
     Indication: Controlled ovarian stimulation
     Dosage: DAILY
     Route: 065
  4. TRIPTORELIN [Suspect]
     Active Substance: TRIPTORELIN
     Indication: Controlled ovarian stimulation
     Dosage: 0.2MG
     Route: 065
  5. TRIPTORELIN [Suspect]
     Active Substance: TRIPTORELIN
     Indication: Prophylactic chemotherapy
     Dosage: 375 MG/ML; DEPOT
     Route: 065
  6. ENOXAPARIN SODIUM [Concomitant]
     Active Substance: ENOXAPARIN SODIUM
     Indication: Thrombosis prophylaxis
     Dosage: 4000 UI
     Route: 065

REACTIONS (1)
  - Ovarian hyperstimulation syndrome [Recovered/Resolved]
